FAERS Safety Report 10164703 (Version 2)
Quarter: 2014Q2

REPORT INFORMATION
  Report Type: Spontaneous
  Country: US (occurrence: US)
  Receive Date: 20140510
  Receipt Date: 20140510
  Transmission Date: 20141212
  Serious: No
  Sender: FDA-Public Use
  Company Number: US-BRISTOL-MYERS SQUIBB COMPANY-18581843

PATIENT
  Age: 62 Year
  Sex: Female
  Weight: 98.86 kg

DRUGS (7)
  1. BYETTA PEN DISPOSABLE [Suspect]
     Indication: TYPE 2 DIABETES MELLITUS
     Dosage: INCREASED TO 10MCG,LOT:C158140A EXP DT:APR2015
     Route: 058
     Dates: start: 2009
  2. EXENATIDE 10MCG PEN, DISPOSABLE DEVICE [Concomitant]
  3. METFORMIN [Concomitant]
     Route: 048
  4. HYDROCHLOROTHIAZIDE [Concomitant]
  5. LISINOPRIL [Concomitant]
  6. TENORMIN [Concomitant]
  7. POTASSIUM [Concomitant]

REACTIONS (2)
  - Underdose [Recovered/Resolved]
  - Blood glucose increased [Not Recovered/Not Resolved]
